FAERS Safety Report 15056865 (Version 1)
Quarter: 2018Q2

REPORT INFORMATION
  Report Type: Spontaneous
  Country: US (occurrence: US)
  Receive Date: 20180604
  Receipt Date: 20180604
  Transmission Date: 20180711
  Serious: Yes (Life-Threatening, Other)
  Sender: FDA-Public Use
  Company Number: None

PATIENT
  Age: 26 Year
  Sex: Female
  Weight: 114.5 kg

DRUGS (11)
  1. FORMOTEROL FUMARATE [Concomitant]
     Active Substance: FORMOTEROL FUMARATE
  2. BUDESONIDE. [Concomitant]
     Active Substance: BUDESONIDE
  3. CITALOPRAM [Concomitant]
     Active Substance: CITALOPRAM HYDROBROMIDE
  4. CETIRIZINE [Concomitant]
     Active Substance: CETIRIZINE HYDROCHLORIDE
  5. ALBUTEROL HFA [Concomitant]
     Active Substance: ALBUTEROL SULFATE
  6. MELATONIN [Concomitant]
     Active Substance: MELATONIN
  7. NEXPLANON [Suspect]
     Active Substance: ETONOGESTREL
     Dates: start: 20180314, end: 20180315
  8. IBUPROFEN. [Concomitant]
     Active Substance: IBUPROFEN
  9. MONTELUKAST [Concomitant]
     Active Substance: MONTELUKAST SODIUM
  10. IPRATROPIUM-ALBUTEROL [Concomitant]
     Active Substance: ALBUTEROL\IPRATROPIUM
  11. ESOMEPRAZOLE [Concomitant]
     Active Substance: ESOMEPRAZOLE

REACTIONS (5)
  - Rash pruritic [None]
  - Dyspnoea [None]
  - Heart rate increased [None]
  - Blood pressure increased [None]
  - Throat irritation [None]

NARRATIVE: CASE EVENT DATE: 20180315
